FAERS Safety Report 18802907 (Version 1)
Quarter: 2021Q1

REPORT INFORMATION
  Report Type: Report from Study
  Country: None (occurrence: US)
  Receive Date: 20210129
  Receipt Date: 20210129
  Transmission Date: 20210419
  Serious: Yes (Other)
  Sender: FDA-Public Use
  Company Number: US-ABBVIE-20K-163-3502571-00

PATIENT
  Age: 47 Year
  Sex: Male

DRUGS (1)
  1. HUMIRA [Suspect]
     Active Substance: ADALIMUMAB
     Indication: CROHN^S DISEASE
     Dosage: CITRATE FREE
     Route: 058

REACTIONS (7)
  - Fistula [Recovered/Resolved]
  - Overweight [Not Recovered/Not Resolved]
  - Liver disorder [Not Recovered/Not Resolved]
  - Crohn^s disease [Recovered/Resolved]
  - Food intolerance [Unknown]
  - Intestinal obstruction [Unknown]
  - Cholecystectomy [Recovered/Resolved]

NARRATIVE: CASE EVENT DATE: 201906
